FAERS Safety Report 24823050 (Version 1)
Quarter: 2025Q1

REPORT INFORMATION
  Report Type: Spontaneous
  Country: CA (occurrence: CA)
  Receive Date: 20250109
  Receipt Date: 20250109
  Transmission Date: 20250409
  Serious: Yes (Other)
  Sender: ROCHE
  Company Number: CA-ROCHE-10000172218

PATIENT
  Sex: Female
  Weight: 47 kg

DRUGS (18)
  1. PERJETA [Suspect]
     Active Substance: PERTUZUMAB
     Indication: Breast cancer metastatic
     Route: 042
  2. PERJETA [Suspect]
     Active Substance: PERTUZUMAB
     Route: 042
  3. TRASTUZUMAB [Suspect]
     Active Substance: TRASTUZUMAB
     Indication: Breast cancer metastatic
     Route: 042
  4. TRASTUZUMAB [Suspect]
     Active Substance: TRASTUZUMAB
     Route: 042
  5. TRASTUZUMAB [Suspect]
     Active Substance: TRASTUZUMAB
     Route: 042
  6. KADCYLA [Suspect]
     Active Substance: ADO-TRASTUZUMAB EMTANSINE
     Indication: Breast cancer metastatic
     Route: 042
  7. KADCYLA [Suspect]
     Active Substance: ADO-TRASTUZUMAB EMTANSINE
     Route: 042
  8. KADCYLA [Suspect]
     Active Substance: ADO-TRASTUZUMAB EMTANSINE
     Route: 042
  9. XELODA [Suspect]
     Active Substance: CAPECITABINE
     Indication: Product used for unknown indication
     Route: 048
  10. HUMAN IMMUNOGLOBULIN G [Concomitant]
     Active Substance: HUMAN IMMUNOGLOBULIN G
  11. TRAMADOL HYDROCHLORIDE [Concomitant]
     Active Substance: TRAMADOL HYDROCHLORIDE
     Route: 048
  12. TRAZIMERA [Concomitant]
     Active Substance: TRASTUZUMAB-QYYP
  13. TRAMADOL HYDROCHLORIDE [Concomitant]
     Active Substance: TRAMADOL HYDROCHLORIDE
  14. SOLU-MEDROL [Concomitant]
     Active Substance: METHYLPREDNISOLONE SODIUM SUCCINATE
  15. PACLITAXEL [Concomitant]
     Active Substance: PACLITAXEL
  16. MAGNESIUM [Concomitant]
     Active Substance: MAGNESIUM
  17. DEXTROSE\HEPARIN SODIUM [Concomitant]
     Active Substance: DEXTROSE\HEPARIN SODIUM
  18. BENADRYL [Concomitant]
     Active Substance: DIPHENHYDRAMINE HYDROCHLORIDE

REACTIONS (48)
  - Abdominal pain [Unknown]
  - Asthenia [Unknown]
  - Blister [Unknown]
  - Blood creatine phosphokinase increased [Unknown]
  - Blood iron decreased [Unknown]
  - Blood magnesium decreased [Unknown]
  - Blood pressure decreased [Unknown]
  - Blood pressure diastolic decreased [Unknown]
  - Blood pressure systolic decreased [Unknown]
  - Blood test abnormal [Unknown]
  - Breast disorder [Unknown]
  - Constipation [Unknown]
  - Dry mouth [Unknown]
  - Dry skin [Unknown]
  - Dry throat [Unknown]
  - Dysmenorrhoea [Unknown]
  - Eczema [Unknown]
  - Electric shock sensation [Unknown]
  - Epistaxis [Unknown]
  - Faeces soft [Unknown]
  - Fatigue [Unknown]
  - Gingival pain [Unknown]
  - Headache [Unknown]
  - Heart rate decreased [Unknown]
  - Hepatitis [Unknown]
  - Hyperaesthesia [Unknown]
  - Hypotension [Unknown]
  - Injection site haemorrhage [Unknown]
  - Malaise [Unknown]
  - Malignant neoplasm progression [Unknown]
  - Muscular weakness [Unknown]
  - Myalgia [Unknown]
  - Nasopharyngitis [Unknown]
  - Nausea [Unknown]
  - Pain [Unknown]
  - Palpitations [Unknown]
  - Paraesthesia [Unknown]
  - Pruritus [Unknown]
  - Recurrent cancer [Unknown]
  - Seasonal allergy [Unknown]
  - Skin fissures [Unknown]
  - Sneezing [Unknown]
  - Stress [Unknown]
  - Tumour marker increased [Unknown]
  - Urinary tract infection [Unknown]
  - Vulvovaginal pain [Unknown]
  - Weight decreased [Unknown]
  - Weight increased [Unknown]
